FAERS Safety Report 22324218 (Version 5)
Quarter: 2023Q4

REPORT INFORMATION
  Report Type: Spontaneous
  Country: US (occurrence: US)
  Receive Date: 20230516
  Receipt Date: 20231110
  Transmission Date: 20240109
  Serious: Yes (Other)
  Sender: FDA-Public Use
  Company Number: US-UNITED THERAPEUTICS-UNT-2023-008877

PATIENT
  Age: 32 Year
  Sex: Female

DRUGS (5)
  1. REMODULIN [Suspect]
     Active Substance: TREPROSTINIL
     Indication: Pulmonary arterial hypertension
     Dosage: 0.06847 ?G/KG, CONTINUING
     Route: 058
  2. REMODULIN [Suspect]
     Active Substance: TREPROSTINIL
     Dosage: 0.07238 ?G/KG, CONTINUING
     Route: 058
  3. REMODULIN [Suspect]
     Active Substance: TREPROSTINIL
     Dosage: UNK, CONTINUING
     Route: 058
     Dates: start: 202205
  4. OPSUMIT [Concomitant]
     Active Substance: MACITENTAN
     Indication: Product used for unknown indication
     Dosage: UNK
     Route: 065
  5. TADALAFIL [Concomitant]
     Active Substance: TADALAFIL
     Indication: Product used for unknown indication
     Dosage: UNK
     Route: 065

REACTIONS (16)
  - Pulmonary arterial hypertension [Unknown]
  - Syncope [Unknown]
  - Device infusion issue [Recovered/Resolved]
  - Device infusion issue [Recovered/Resolved]
  - Dyspnoea [Recovering/Resolving]
  - Dizziness [Recovering/Resolving]
  - Flushing [Not Recovered/Not Resolved]
  - Device malfunction [Recovered/Resolved]
  - Feeling abnormal [Recovered/Resolved]
  - Respiration abnormal [Recovered/Resolved]
  - Incorrect dose administered [Recovered/Resolved]
  - Device failure [Recovered/Resolved]
  - Device failure [Recovered/Resolved]
  - Device malfunction [Recovered/Resolved]
  - Device malfunction [Recovered/Resolved]
  - Fatigue [Recovering/Resolving]

NARRATIVE: CASE EVENT DATE: 20230301
